FAERS Safety Report 8953199 (Version 1)
Quarter: 2012Q4

REPORT INFORMATION
  Report Type: 
  Country: FR (occurrence: FR)
  Receive Date: 20121206
  Receipt Date: 20121206
  Transmission Date: 20130627
  Serious: Yes (Life-Threatening, Hospitalization, Other)
  Sender: FDA-Public Use
  Company Number: FR-AMGEN-FRASP2012077799

PATIENT
  Age: 68 Year
  Sex: Female

DRUGS (6)
  1. ENBREL [Suspect]
     Indication: RHEUMATOID ARTHRITIS
     Dosage: 1 DF, weekly
     Route: 058
  2. METHOTREXATE SODIUM [Suspect]
     Dosage: 1 DF, weekly
     Route: 048
  3. LEXOMIL [Concomitant]
     Dosage: UNK UNK, UNK
  4. HAVLANE [Concomitant]
     Dosage: UNK UNK, UNK
  5. LAMALINE                           /00764901/ [Concomitant]
     Dosage: UNK UNK, UNK
  6. PRITOR                             /01421801/ [Concomitant]
     Dosage: UNK UNK, UNK

REACTIONS (5)
  - Non-Hodgkin^s lymphoma [Unknown]
  - Acute respiratory distress syndrome [Recovered/Resolved]
  - Pancytopenia [Recovered/Resolved]
  - Interstitial lung disease [Recovered/Resolved]
  - Pneumocystis jiroveci pneumonia [Recovered/Resolved]
